FAERS Safety Report 8219804-2 (Version None)
Quarter: 2012Q1

REPORT INFORMATION
  Report Type: 
  Country: None (occurrence: None)
  Receive Date: 20120319
  Receipt Date: 20120312
  Transmission Date: 20120608
  Serious: Yes (Other)
  Sender: FDA-Public Use
  Company Number: US-ASTRAZENECA-2012SE17064

PATIENT
  Age: 56 Year
  Sex: Male

DRUGS (4)
  1. NEXIUM [Suspect]
     Route: 048
  2. CRESTOR [Suspect]
     Route: 048
  3. ATACAND [Suspect]
     Route: 048
  4. TOPROL-XL [Suspect]
     Route: 048

REACTIONS (1)
  - CARDIAC DISORDER [None]
